FAERS Safety Report 6167064-9 (Version None)
Quarter: 2009Q2

REPORT INFORMATION
  Report Type: 
  Country: None (occurrence: None)
  Receive Date: 20090423
  Receipt Date: 20090423
  Transmission Date: 20091009
  Serious: Yes (Other)
  Sender: FDA-Public Use
  Company Number: None

PATIENT
  Age: 50 Year
  Sex: Female
  Weight: 74.3899 kg

DRUGS (1)
  1. TESTOSTERONE [Suspect]
     Indication: LOSS OF LIBIDO
     Dosage: ONE PELLETT  OTHER
     Route: 050
     Dates: start: 20090310, end: 20090326

REACTIONS (5)
  - AGGRESSION [None]
  - DEPRESSION [None]
  - HEADACHE [None]
  - HEART RATE IRREGULAR [None]
  - NAUSEA [None]
